FAERS Safety Report 4894776-7 (Version None)
Quarter: 2006Q1

REPORT INFORMATION
  Report Type: 
  Country: None (occurrence: None)
  Receive Date: 20060130
  Receipt Date: 20060120
  Transmission Date: 20060701
  Serious: Yes (Other)
  Sender: FDA-Public Use
  Company Number: US-JNJFOC-20060104624

PATIENT
  Sex: Female
  Weight: 54.43 kg

DRUGS (6)
  1. REMICADE [Suspect]
     Route: 042
     Dates: start: 20051201
  2. REMICADE [Suspect]
     Route: 042
     Dates: start: 20051201
  3. MAXZIDE [Concomitant]
  4. MAXZIDE [Concomitant]
  5. EVISTA [Concomitant]
     Indication: OSTEOPOROSIS
  6. MIRALAX [Concomitant]
     Indication: CONSTIPATION

REACTIONS (2)
  - LUPUS-LIKE SYNDROME [None]
  - WEIGHT INCREASED [None]
